FAERS Safety Report 19750347 (Version 1)
Quarter: 2021Q3

REPORT INFORMATION
  Report Type: Spontaneous
  Country: US (occurrence: US)
  Receive Date: 20210826
  Receipt Date: 20210826
  Transmission Date: 20211014
  Serious: Yes (Hospitalization, Other)
  Sender: FDA-Public Use
  Company Number: None

PATIENT
  Sex: Female

DRUGS (7)
  1. NITROFUR MAC [Concomitant]
     Active Substance: NITROFURANTOIN
  2. VERAMPAMIL [Concomitant]
  3. ATORVASTATIN [Concomitant]
     Active Substance: ATORVASTATIN
  4. ENBREL [Suspect]
     Active Substance: ETANERCEPT
     Dosage: ?          OTHER FREQUENCY:QWK;?
     Route: 058
     Dates: start: 20190329
  5. FOLIC ACID. [Concomitant]
     Active Substance: FOLIC ACID
  6. CEFUROXIME. [Concomitant]
     Active Substance: CEFUROXIME
  7. TIZANIDINE. [Concomitant]
     Active Substance: TIZANIDINE

REACTIONS (1)
  - Surgery [None]
